FAERS Safety Report 7487817-4 (Version None)
Quarter: 2011Q2

REPORT INFORMATION
  Report Type: 
  Country: None (occurrence: None)
  Receive Date: 20110518
  Receipt Date: 20110513
  Transmission Date: 20111010
  Serious: Yes (Hospitalization, Other)
  Sender: FDA-Public Use
  Company Number: DE-BAYER-2011-005675

PATIENT
  Age: 64 Year
  Weight: 65 kg

DRUGS (1)
  1. NEXAVAR [Suspect]
     Indication: PRODUCT USED FOR UNKNOWN INDICATION
     Dosage: 800 MG, UNK
     Route: 048
     Dates: start: 20101001, end: 20101201

REACTIONS (4)
  - PAIN IN EXTREMITY [None]
  - HEMIPARESIS [None]
  - LEUKOCYTOCLASTIC VASCULITIS [None]
  - SKIN ULCER [None]
